FAERS Safety Report 7422687-1 (Version None)
Quarter: 2011Q2

REPORT INFORMATION
  Report Type: 
  Country: None (occurrence: None)
  Receive Date: 20110419
  Receipt Date: 20110408
  Transmission Date: 20111010
  Serious: Yes (Other)
  Sender: FDA-Public Use
  Company Number: US-ELI_LILLY_AND_COMPANY-US201104003309

PATIENT
  Age: 37 Year
  Sex: Male

DRUGS (2)
  1. ANALGESICS [Concomitant]
     Dosage: UNK
     Dates: start: 19870101
  2. CYMBALTA [Suspect]
     Indication: BACK PAIN
     Dosage: 60 MG, QD
     Dates: start: 20110301

REACTIONS (22)
  - BACK PAIN [None]
  - VISION BLURRED [None]
  - NAUSEA [None]
  - LOSS OF CONSCIOUSNESS [None]
  - HEADACHE [None]
  - INSOMNIA [None]
  - DECREASED APPETITE [None]
  - DYSPNOEA [None]
  - AMNESIA [None]
  - DRY MOUTH [None]
  - CONSTIPATION [None]
  - ABDOMINAL PAIN [None]
  - DEMENTIA [None]
  - MIGRAINE [None]
  - FATIGUE [None]
  - FALL [None]
  - GAIT DISTURBANCE [None]
  - HYPERHIDROSIS [None]
  - EYE DISORDER [None]
  - OCULAR HYPERAEMIA [None]
  - DRUG INTERACTION [None]
  - DIZZINESS [None]
